FAERS Safety Report 20092023 (Version 1)
Quarter: 2021Q4

REPORT INFORMATION
  Report Type: Spontaneous
  Country: None (occurrence: AU)
  Receive Date: 20211119
  Receipt Date: 20211119
  Transmission Date: 20220303
  Serious: Yes (Other)
  Sender: FDA-Public Use
  Company Number: AU-Nova Laboratories Limited-2122077

PATIENT
  Sex: Female

DRUGS (4)
  1. PURIXAN [Suspect]
     Active Substance: MERCAPTOPURINE
     Indication: Colitis ulcerative
  2. VEDOLIZUMAB [Suspect]
     Active Substance: VEDOLIZUMAB
  3. MESALAMINE [Suspect]
     Active Substance: MESALAMINE
  4. MESALAMINE [Suspect]
     Active Substance: MESALAMINE

REACTIONS (3)
  - Diarrhoea haemorrhagic [Unknown]
  - Poor quality sleep [Unknown]
  - Off label use [None]
